FAERS Safety Report 7023958-3 (Version None)
Quarter: 2010Q3

REPORT INFORMATION
  Report Type: 
  Country: None (occurrence: None)
  Receive Date: 20100929
  Receipt Date: 20100921
  Transmission Date: 20110219
  Serious: Yes (Other)
  Sender: FDA-Public Use
  Company Number: US-ACCORD-006179

PATIENT
  Age: 67 Year
  Sex: Female

DRUGS (4)
  1. SIMVASTATIN [Suspect]
     Indication: BLOOD CHOLESTEROL ABNORMAL
     Dosage: 10 MG 1 PER 1 DAY ORAL
     Route: 048
     Dates: start: 20100801, end: 20100917
  2. ESTROGENS (ESTROGENS) [Concomitant]
  3. ZYRTEC [Concomitant]
  4. ACIDOPHILUS (ACIDOPHILUS) [Concomitant]

REACTIONS (9)
  - ARTHRALGIA [None]
  - BACK PAIN [None]
  - CONSTIPATION [None]
  - DEMENTIA [None]
  - DEPRESSION [None]
  - FLATULENCE [None]
  - INSOMNIA [None]
  - NERVOUSNESS [None]
  - PALPITATIONS [None]
